FAERS Safety Report 9308055 (Version 1)
Quarter: 2013Q2

REPORT INFORMATION
  Report Type: Spontaneous
  Country: US (occurrence: US)
  Receive Date: 20130524
  Receipt Date: 20130524
  Transmission Date: 20140414
  Serious: No
  Sender: FDA-Public Use
  Company Number: US-BAYER-2013-063863

PATIENT
  Sex: Male
  Weight: 84 kg

DRUGS (12)
  1. BETASERON [Suspect]
     Dosage: 0.25 ML, QOD
     Route: 058
  2. BETASERON [Suspect]
     Dosage: 0.5 ML, QOD
  3. BETASERON [Suspect]
     Dosage: 0.75 ML, QOD
  4. BETASERON [Suspect]
     Dosage: 1 ML, QOD
  5. MULTIVITAMIN [Concomitant]
  6. FISH OIL [Concomitant]
  7. VITAMIN B12 [Concomitant]
     Dosage: 1000 CR
  8. VITAMIN C [Concomitant]
     Dosage: 500 MG, UNK
  9. BENADRYL [Concomitant]
     Dosage: 25 MG, UNK
  10. CALCIUM [Concomitant]
     Dosage: 500 MG, UNK
  11. ADVIL [Concomitant]
     Indication: HYPERSENSITIVITY
  12. ADVIL [Concomitant]
     Indication: NASAL CONGESTION

REACTIONS (5)
  - Muscle spasms [Unknown]
  - Sluggishness [Unknown]
  - Contusion [Unknown]
  - Paraesthesia [Unknown]
  - Influenza like illness [Unknown]
